FAERS Safety Report 20685736 (Version 2)
Quarter: 2022Q2

REPORT INFORMATION
  Report Type: Report from Study
  Country: US (occurrence: US)
  Receive Date: 20220407
  Receipt Date: 20220613
  Transmission Date: 20220720
  Serious: No
  Sender: FDA-Public Use
  Company Number: US-NOVARTISTESTPH-NVSC2022US079247

PATIENT
  Sex: Female
  Weight: 193.97 kg

DRUGS (4)
  1. TREPROSTINIL [Suspect]
     Active Substance: TREPROSTINIL
     Indication: Pulmonary arterial hypertension
     Dosage: 2 (NG/KG/MIN), CONT
     Route: 058
     Dates: start: 20220317
  2. TREPROSTINIL [Suspect]
     Active Substance: TREPROSTINIL
     Dosage: 13 (NG/KG/MIN), CONT
     Route: 058
  3. OPSUMIT [Concomitant]
     Active Substance: MACITENTAN
     Indication: Product used for unknown indication
     Dosage: UNK
     Route: 065
  4. TADALAFIL [Concomitant]
     Active Substance: TADALAFIL
     Indication: Product used for unknown indication
     Dosage: UNK
     Route: 065

REACTIONS (4)
  - Pruritus [Unknown]
  - Burning sensation [Unknown]
  - Infusion site erythema [Unknown]
  - Infusion site pruritus [Unknown]
